FAERS Safety Report 21950817 (Version 2)
Quarter: 2023Q1

REPORT INFORMATION
  Report Type: Spontaneous
  Country: PL (occurrence: PL)
  Receive Date: 20230203
  Receipt Date: 20230306
  Transmission Date: 20230418
  Serious: Yes (Hospitalization, Disabling, Other)
  Sender: FDA-Public Use
  Company Number: PL-SA-SAC20230202001427

PATIENT
  Age: 53 Year
  Sex: Female
  Weight: 55 kg

DRUGS (13)
  1. AUBAGIO [Suspect]
     Active Substance: TERIFLUNOMIDE
     Indication: Relapsing-remitting multiple sclerosis
     Dosage: UNK UNK, QD
     Route: 048
     Dates: start: 20220920
  2. PREGABALIN [Concomitant]
     Active Substance: PREGABALIN
     Indication: Neuralgia
     Dosage: 750-150
     Route: 048
  3. DITROPAN [Concomitant]
     Active Substance: OXYBUTYNIN CHLORIDE
     Indication: Neurogenic bladder
     Dosage: 2X1
     Route: 048
     Dates: start: 20221207, end: 20221214
  4. TIZANIDINE [Concomitant]
     Active Substance: TIZANIDINE
     Indication: Muscle spasticity
     Dosage: 1X1
     Route: 048
  5. INTERFERON [Concomitant]
     Active Substance: INTERFERON
  6. PREGABALIN [Concomitant]
     Active Substance: PREGABALIN
     Dosage: UNK
  7. ASPIRIN [Concomitant]
     Active Substance: ASPIRIN
     Dosage: UNK
     Dates: start: 20221208, end: 20221214
  8. POTASSIUM CHLORIDE [Concomitant]
     Active Substance: POTASSIUM CHLORIDE
     Dosage: UNK
     Dates: start: 20221208, end: 20221214
  9. OZZION [Concomitant]
     Dosage: UNK
     Dates: start: 20221209, end: 20221214
  10. CALCIUM CHLORIDE\MAGNESIUM CHLORIDE\POTASSIUM CHLORIDE\SODIUM ACETATE\ [Concomitant]
     Active Substance: CALCIUM CHLORIDE\MAGNESIUM CHLORIDE\POTASSIUM CHLORIDE\SODIUM ACETATE\SODIUM CHLORIDE\SODIUM CITRATE
     Dosage: UNK
     Dates: start: 20221210, end: 20221211
  11. DEXTROSE [Concomitant]
     Active Substance: DEXTROSE
     Dosage: UNK
     Dates: start: 20221211, end: 20221213
  12. METOCLOPRAMIDE [Concomitant]
     Active Substance: METOCLOPRAMIDE
     Dosage: UNK
     Dates: start: 20221211, end: 20221213
  13. LACTULOSE [Concomitant]
     Active Substance: LACTULOSE
     Dosage: UNK
     Dates: start: 20221214, end: 20221214

REACTIONS (17)
  - Monoparesis [Recovered/Resolved]
  - Myopathy [Recovered/Resolved]
  - Myalgia [Recovered/Resolved]
  - Disability [Unknown]
  - Neuropathic muscular atrophy [Unknown]
  - Areflexia [Recovering/Resolving]
  - Gait disturbance [Recovering/Resolving]
  - Muscular weakness [Recovering/Resolving]
  - Nerve injury [Unknown]
  - Gallbladder disorder [Unknown]
  - Dysstasia [Unknown]
  - Nerve conduction studies abnormal [Unknown]
  - Blood lactate dehydrogenase increased [Unknown]
  - C-reactive protein increased [Unknown]
  - Protein urine present [Unknown]
  - Blood creatine phosphokinase increased [Recovered/Resolved]
  - Transaminases increased [Recovered/Resolved]

NARRATIVE: CASE EVENT DATE: 20221201
